FAERS Safety Report 8773788 (Version 1)
Quarter: 2012Q4

REPORT INFORMATION
  Report Type: 
  Country: US (occurrence: US)
  Receive Date: 20120907
  Receipt Date: 20120907
  Transmission Date: 20130627
  Serious: Yes (Hospitalization)
  Sender: FDA-Public Use
  Company Number: US-ELI_LILLY_AND_COMPANY-US201106002142

PATIENT
  Age: 49 Year
  Sex: Male
  Weight: 93.88 kg

DRUGS (8)
  1. EFFIENT [Suspect]
     Indication: CORONARY ARTERIAL STENT INSERTION
     Dosage: 10 mg, qd
     Dates: start: 20110507
  2. LIPITOR [Concomitant]
     Dosage: 80 mg, qd
     Route: 048
  3. NOVOLIN GE 30/70 [Concomitant]
     Dosage: 23 u, each morning
     Route: 058
  4. NOVOLIN GE 30/70 [Concomitant]
     Dosage: 18 u, each evening
  5. LISINOPRIL [Concomitant]
     Dosage: 10 mg, qd
     Route: 048
  6. COREG [Concomitant]
     Dosage: 12.5 mg, bid
     Route: 048
  7. ASPIRIN [Concomitant]
     Dosage: 325 mg, qd
     Route: 048
  8. NITROGLYCERIN [Concomitant]
     Dosage: UNK, prn
     Route: 060

REACTIONS (1)
  - Ventricular tachycardia [Recovering/Resolving]
